FAERS Safety Report 5504060-6 (Version None)
Quarter: 2007Q4

REPORT INFORMATION
  Report Type: 
  Country: None (occurrence: None)
  Receive Date: 20071030
  Receipt Date: 20071018
  Transmission Date: 20080405
  Serious: Yes (Life-Threatening)
  Sender: FDA-Public Use
  Company Number: 2007EN000261

PATIENT
  Age: 46 Year
  Sex: Female
  Weight: 70.3075 kg

DRUGS (6)
  1. OPANA ER [Suspect]
     Indication: DRUG USE FOR UNKNOWN INDICATION
     Dosage: 40 MG;QD;PO, 40;X1;PO
     Route: 048
     Dates: start: 20070924, end: 20070926
  2. OPANA ER [Suspect]
     Indication: DRUG USE FOR UNKNOWN INDICATION
     Dosage: 40 MG;QD;PO, 40;X1;PO
     Route: 048
     Dates: start: 20071003, end: 20071003
  3. MORPHINE SULFATE [Concomitant]
  4. KADIAN [Concomitant]
  5. AVINZA [Concomitant]
  6. DIURETICS [Concomitant]

REACTIONS (1)
  - ANAPHYLACTIC SHOCK [None]
